FAERS Safety Report 12525399 (Version 1)
Quarter: 2016Q3

REPORT INFORMATION
  Report Type: Spontaneous
  Country: None (occurrence: US)
  Receive Date: 20160704
  Receipt Date: 20160704
  Transmission Date: 20161109
  Serious: Yes (Disabling, Other)
  Sender: FDA-Public Use
  Company Number: US-PRESTIGE BRANDS -1054578

PATIENT
  Sex: Male

DRUGS (1)
  1. DEBROX [Suspect]
     Active Substance: CARBAMIDE PEROXIDE
     Route: 047

REACTIONS (7)
  - Instillation site pain [Unknown]
  - Eye irritation [Unknown]
  - Blindness [Not Recovered/Not Resolved]
  - Instillation site erythema [None]
  - Incorrect route of drug administration [None]
  - Instillation site pain [None]
  - Accidental exposure to product [None]
